FAERS Safety Report 5075224-3 (Version None)
Quarter: 2006Q3

REPORT INFORMATION
  Report Type: 
  Country: None (occurrence: None)
  Receive Date: 20060804
  Receipt Date: 20060720
  Transmission Date: 20061208
  Serious: No
  Sender: FDA-Public Use
  Company Number: US017238

PATIENT
  Age: 24 Month
  Sex: Male

DRUGS (1)
  1. ACTIQ (SUGAR-FREE) [Suspect]
     Dosage: 400 UG ONCE BUCCAL
     Route: 002
     Dates: start: 20040529, end: 20040529

REACTIONS (1)
  - ACCIDENTAL DRUG INTAKE BY CHILD [None]
